FAERS Safety Report 4431814-X (Version None)
Quarter: 2004Q3

REPORT INFORMATION
  Report Type: 
  Country: None (occurrence: None)
  Receive Date: 20040825
  Receipt Date: 20040816
  Transmission Date: 20050211
  Serious: Yes (Other)
  Sender: FDA-Public Use
  Company Number: US-JNJFOC-20040405735

PATIENT
  Sex: Male
  Weight: 61.24 kg

DRUGS (2)
  1. DURAGESIC [Suspect]
     Route: 062
     Dates: end: 20040404
  2. DURAGESIC [Suspect]
     Route: 062
     Dates: end: 20040404

REACTIONS (6)
  - CONVULSION [None]
  - DELIRIUM [None]
  - HALLUCINATION [None]
  - NAUSEA [None]
  - VOMITING [None]
  - WEIGHT DECREASED [None]
